FAERS Safety Report 17472334 (Version 1)
Quarter: 2020Q1

REPORT INFORMATION
  Report Type: Spontaneous
  Country: US (occurrence: US)
  Receive Date: 20200217
  Receipt Date: 20200217
  Transmission Date: 20200409
  Serious: Yes (Hospitalization)
  Sender: FDA-Public Use
  Company Number: None

PATIENT
  Age: 60 Year
  Sex: Female

DRUGS (12)
  1. AZATHIOPRINE. [Concomitant]
     Active Substance: AZATHIOPRINE
  2. CLARITIN [Concomitant]
     Active Substance: LORATADINE
  3. STELARA [Suspect]
     Active Substance: USTEKINUMAB
     Indication: CROHN^S DISEASE
     Dosage: ?          OTHER FREQUENCY:1 Q 8 WEEKS;?
     Route: 058
     Dates: start: 20190424
  4. CIPROFLOXACIN. [Concomitant]
     Active Substance: CIPROFLOXACIN
  5. AZITHROMYCIN ANHYDROUS. [Concomitant]
     Active Substance: AZITHROMYCIN ANHYDROUS
  6. GEMFIBROZIL. [Concomitant]
     Active Substance: GEMFIBROZIL
  7. OMNARIS [Concomitant]
     Active Substance: CICLESONIDE
  8. CALTRATE [Concomitant]
     Active Substance: CALCIUM CARBONATE
  9. NIASPAN [Concomitant]
     Active Substance: NIACIN
  10. PANTOPRAZOLE [Concomitant]
     Active Substance: PANTOPRAZOLE
  11. FERROUS SULFATE. [Concomitant]
     Active Substance: FERROUS SULFATE
  12. XIFAXAN [Concomitant]
     Active Substance: RIFAXIMIN

REACTIONS (3)
  - Condition aggravated [None]
  - Diarrhoea [None]
  - Abdominal pain [None]

NARRATIVE: CASE EVENT DATE: 202001
